FAERS Safety Report 6668872-8 (Version None)
Quarter: 2010Q2

REPORT INFORMATION
  Report Type: 
  Country: None (occurrence: None)
  Receive Date: 20100402
  Receipt Date: 20100325
  Transmission Date: 20101027
  Serious: Yes (Other)
  Sender: FDA-Public Use
  Company Number: DSU-2010-01282

PATIENT
  Age: 43 Year
  Sex: Male
  Weight: 56.6996 kg

DRUGS (4)
  1. BENICAR HCT [Suspect]
     Indication: HYPERTENSION
     Dosage: 40/12.5 MILLIGRAM (QD), PER ORAL
     Route: 048
  2. TOPROL XL (METOPROLOL SUCCINATE) (50 MILLIGRAM) (METOPROLOL SUCCINATE) [Concomitant]
  3. ZOCOR [Concomitant]
  4. TRICOR (FENOFIBRATE) (145 MILLIGRAM) (FENOFIBRATE) [Concomitant]

REACTIONS (6)
  - FLUID RETENTION [None]
  - GAIT DISTURBANCE [None]
  - GASTRIC CANCER [None]
  - MUSCLE TWITCHING [None]
  - NASAL CONGESTION [None]
  - PAIN IN EXTREMITY [None]
